FAERS Safety Report 5032496-9 (Version None)
Quarter: 2006Q2

REPORT INFORMATION
  Report Type: 
  Country: None (occurrence: None)
  Receive Date: 20060621
  Receipt Date: 20060621
  Transmission Date: 20061013
  Serious: No
  Sender: FDA-Public Use
  Company Number: None

PATIENT
  Age: 10 Year
  Sex: Male
  Weight: 26.7622 kg

DRUGS (3)
  1. CLARITIN [Suspect]
     Indication: RHINITIS ALLERGIC
     Dosage: 10 MG PO Q DAY
     Route: 048
     Dates: start: 20060501
  2. CLARITIN [Suspect]
     Indication: RHINITIS ALLERGIC
     Dosage: 10 MG PO Q DAY
     Route: 048
     Dates: start: 20060601
  3. CLARITIN [Suspect]
     Indication: RHINITIS ALLERGIC
     Dosage: 10 MG PO Q DAY
     Route: 048
     Dates: start: 20020901

REACTIONS (1)
  - EPISTAXIS [None]
